FAERS Safety Report 12524698 (Version 2)
Quarter: 2016Q4

REPORT INFORMATION
  Report Type: Spontaneous
  Country: US (occurrence: US)
  Receive Date: 20160704
  Receipt Date: 20161031
  Transmission Date: 20170207
  Serious: No
  Sender: FDA-Public Use
  Company Number: US-BRISTOL-MYERS SQUIBB COMPANY-BMS-2016-053300

PATIENT
  Age: 59 Year
  Sex: Female
  Weight: 103 kg

DRUGS (1)
  1. ELIQUIS [Suspect]
     Active Substance: APIXABAN
     Indication: CEREBROVASCULAR ACCIDENT PROPHYLAXIS
     Dosage: 5 MG, BID
     Route: 048
     Dates: start: 20160623

REACTIONS (3)
  - Headache [Unknown]
  - Alopecia [Unknown]
  - Weight increased [Unknown]

NARRATIVE: CASE EVENT DATE: 20160624
